FAERS Safety Report 6134159-5 (Version None)
Quarter: 2009Q1

REPORT INFORMATION
  Report Type: 
  Country: None (occurrence: None)
  Receive Date: 20090325
  Receipt Date: 20090310
  Transmission Date: 20090719
  Serious: Yes (Other)
  Sender: FDA-Public Use
  Company Number: DSA_33374_2009

PATIENT
  Sex: Male

DRUGS (20)
  1. ATIVAN [Suspect]
     Indication: ANXIETY
     Dosage: (0.5 MG 1X/6 HOURS ORAL)
     Route: 048
     Dates: start: 20080902, end: 20080904
  2. BAPINEUZUMAB [Suspect]
     Indication: DEMENTIA ALZHEIMER'S TYPE
     Dosage: (2 MG/KG 1X) ; (2 MG/KG 1X) ; (2 MG/KG 1X)
     Dates: start: 20080326, end: 20080326
  3. BAPINEUZUMAB [Suspect]
     Indication: DEMENTIA ALZHEIMER'S TYPE
     Dosage: (2 MG/KG 1X) ; (2 MG/KG 1X) ; (2 MG/KG 1X)
     Dates: start: 20080625, end: 20080625
  4. BAPINEUZUMAB [Suspect]
     Indication: DEMENTIA ALZHEIMER'S TYPE
     Dosage: (2 MG/KG 1X) ; (2 MG/KG 1X) ; (2 MG/KG 1X)
     Dates: start: 20080924, end: 20080924
  5. SEROQUEL [Suspect]
     Indication: ANXIETY
     Dosage: (50 MG QD ORAL) ; 25 MG, EVERY 1/2 HR ORAL) ; (DF ORAL)
     Route: 048
     Dates: start: 20080907, end: 20080908
  6. SEROQUEL [Suspect]
     Indication: ANXIETY
     Dosage: (50 MG QD ORAL) ; 25 MG, EVERY 1/2 HR ORAL) ; (DF ORAL)
     Route: 048
     Dates: start: 20080909, end: 20080916
  7. SEROQUEL [Suspect]
     Indication: ANXIETY
     Dosage: (50 MG QD ORAL) ; 25 MG, EVERY 1/2 HR ORAL) ; (DF ORAL)
     Route: 048
     Dates: start: 20080901, end: 20080922
  8. NAMENDA [Concomitant]
  9. ZOLOFT [Concomitant]
  10. ALLEGRA [Concomitant]
  11. ALEVE [Concomitant]
  12. ASPIRIN [Concomitant]
  13. TOCOPHEROL CONCENTRATE CAP [Concomitant]
  14. GLUCOSAMINE [Concomitant]
  15. MULTI-VITAMINS [Concomitant]
  16. VITAMIN B-12 [Concomitant]
  17. METFORMIN HCL [Concomitant]
  18. ACETYLSALICYLIC ACID [Concomitant]
  19. CALCIUM CITRATE [Concomitant]
  20. CRESTOR [Concomitant]

REACTIONS (20)
  - ADJUSTMENT DISORDER [None]
  - AGITATION [None]
  - ASTHENIA [None]
  - BACK PAIN [None]
  - BALANCE DISORDER [None]
  - BENIGN PROSTATIC HYPERPLASIA [None]
  - DEAFNESS [None]
  - DEPRESSION [None]
  - DIABETES MELLITUS [None]
  - DIVERTICULITIS [None]
  - EYE IRRITATION [None]
  - FALL [None]
  - HYPERSENSITIVITY [None]
  - LACERATION [None]
  - MYALGIA [None]
  - SINUS BRADYCARDIA [None]
  - SPEECH DISORDER [None]
  - SUBDURAL HAEMATOMA [None]
  - TINNITUS [None]
  - URINARY INCONTINENCE [None]
